FAERS Safety Report 8936445 (Version 1)
Quarter: 2012Q4

REPORT INFORMATION
  Report Type: 
  Country: US (occurrence: US)
  Receive Date: 20121130
  Receipt Date: 20121130
  Transmission Date: 20130627
  Serious: Yes (Hospitalization, Other)
  Sender: FDA-Public Use
  Company Number: US-ELI_LILLY_AND_COMPANY-US201211006439

PATIENT
  Age: 76 Year
  Sex: Female

DRUGS (8)
  1. CYMBALTA [Suspect]
     Indication: DEPRESSION
     Dosage: 60 mg, bid
     Dates: start: 2009
  2. NEURONTIN [Concomitant]
     Indication: NEURALGIA
  3. ZANAFLEX [Concomitant]
     Indication: THROAT TIGHTNESS
     Dosage: 4 mg, prn
  4. LORAZEPAM [Concomitant]
     Dosage: 1 mg, qid
  5. FIORICET [Concomitant]
     Dosage: UNK, prn
  6. BENTYL [Concomitant]
     Indication: ABDOMINAL PAIN
     Dosage: 20 mg, prn
  7. DIAZEPAM [Concomitant]
     Dosage: 10 mg, unknown
  8. BENADRYL [Concomitant]
     Indication: SLEEP DISORDER

REACTIONS (8)
  - Depression [Unknown]
  - Anxiety [Unknown]
  - Suicidal ideation [Recovered/Resolved]
  - Insomnia [Unknown]
  - Overdose [Unknown]
  - Abdominal pain [Unknown]
  - Throat tightness [Unknown]
  - Oropharyngeal pain [Unknown]
